FAERS Safety Report 10455660 (Version 1)
Quarter: 2014Q3

REPORT INFORMATION
  Report Type: Spontaneous
  Country: US (occurrence: None)
  Receive Date: 20140915
  Receipt Date: 20140915
  Transmission Date: 20150326
  Serious: Yes (Disabling, Other)
  Sender: FDA-Public Use
  Company Number: None

PATIENT
  Age: 5 Year
  Sex: Male
  Weight: 21.77 kg

DRUGS (1)
  1. LARIAM [Suspect]
     Active Substance: MEFLOQUINE HYDROCHLORIDE
     Indication: MALARIA PROPHYLAXIS
     Dosage: 1/2 TAB (125MG) ONCE A WEEK TAKEN BY MOUTH
     Route: 048
     Dates: start: 20140803, end: 20140907

REACTIONS (10)
  - Night blindness [None]
  - Eye pain [None]
  - Pain [None]
  - Colour vision tests abnormal [None]
  - Abdominal pain [None]
  - Vision blurred [None]
  - Discomfort [None]
  - Visual acuity reduced [None]
  - Sensory disturbance [None]
  - Chest pain [None]

NARRATIVE: CASE EVENT DATE: 20140909
